FAERS Safety Report 23333786 (Version 1)
Quarter: 2023Q4

REPORT INFORMATION
  Report Type: Spontaneous
  Country: GB (occurrence: GB)
  Receive Date: 20231223
  Receipt Date: 20231223
  Transmission Date: 20240109
  Serious: Yes (Other)
  Sender: FDA-Public Use
  Company Number: None

PATIENT
  Age: 46 Year
  Sex: Female
  Weight: 59 kg

DRUGS (1)
  1. IVABRADINE [Suspect]
     Active Substance: IVABRADINE
     Indication: Myocardial ischaemia
     Dosage: 7.5 MG, BID
     Route: 065
     Dates: start: 20230601

REACTIONS (1)
  - Hyperhidrosis [Not Recovered/Not Resolved]
